FAERS Safety Report 17356651 (Version 1)
Quarter: 2020Q1

REPORT INFORMATION
  Report Type: Spontaneous
  Country: IE (occurrence: IE)
  Receive Date: 20200131
  Receipt Date: 20200131
  Transmission Date: 20200409
  Serious: Yes (Other)
  Sender: FDA-Public Use
  Company Number: IE-MYLANLABS-2020M1011273

PATIENT
  Age: 76 Year
  Sex: Female
  Weight: 53.8 kg

DRUGS (6)
  1. AMIKACIN. [Concomitant]
     Active Substance: AMIKACIN
     Indication: BRONCHIECTASIS
     Dosage: 540 MILLIGRAM, QD, ONCE DAILY
     Route: 042
  2. KLACID [Suspect]
     Active Substance: CLARITHROMYCIN
     Indication: BRONCHIECTASIS
     Dosage: 500 MILLIGRAM, BID, IV (PICC LINE IN RIGHT ARM), HOURLY INFUSION
     Route: 041
     Dates: start: 20191011, end: 20191019
  3. KLACID [Suspect]
     Active Substance: CLARITHROMYCIN
     Indication: CONDITION AGGRAVATED
  4. TYGACIL [Concomitant]
     Active Substance: TIGECYCLINE
     Indication: MYCOBACTERIAL INFECTION
     Dosage: 50 MILLIGRAM, BID, 50MG TWICE A DAY
     Route: 042
     Dates: start: 20191011, end: 20191019
  5. TYGACIL [Concomitant]
     Active Substance: TIGECYCLINE
     Indication: BRONCHIECTASIS
  6. AMIKACIN. [Concomitant]
     Active Substance: AMIKACIN
     Indication: MYCOBACTERIAL INFECTION

REACTIONS (3)
  - Breast pain [Recovered/Resolved]
  - Infusion site pain [Recovered/Resolved]
  - Pain in extremity [Recovered/Resolved]

NARRATIVE: CASE EVENT DATE: 20191018
